FAERS Safety Report 9304595 (Version 2)
Quarter: 2013Q2

REPORT INFORMATION
  Report Type: Spontaneous
  Country: SE (occurrence: SE)
  Receive Date: 20130523
  Receipt Date: 20130613
  Transmission Date: 20140414
  Serious: Yes (Hospitalization)
  Sender: FDA-Public Use
  Company Number: SE-BIOGENIDEC-2013BI043985

PATIENT
  Sex: Female

DRUGS (8)
  1. TYSABRI [Suspect]
     Indication: MULTIPLE SCLEROSIS
     Route: 042
     Dates: start: 20121024
  2. TREO COMP [Concomitant]
  3. PANODIL [Concomitant]
  4. ADALAT [Concomitant]
  5. LOSARTAN [Concomitant]
  6. SEROXAT [Concomitant]
  7. FURIX [Concomitant]
  8. LOCOID CREME [Concomitant]

REACTIONS (3)
  - Erysipelas [Recovered/Resolved]
  - Tonsillitis [Recovered/Resolved]
  - Psoriasis [Not Recovered/Not Resolved]
